FAERS Safety Report 13064265 (Version 1)
Quarter: 2016Q4

REPORT INFORMATION
  Report Type: Spontaneous
  Country: US (occurrence: US)
  Receive Date: 20161223
  Receipt Date: 20161223
  Transmission Date: 20170207
  Serious: Yes (Other)
  Sender: FDA-Public Use
  Company Number: None

PATIENT
  Age: 41 Year
  Sex: Male
  Weight: 84.6 kg

DRUGS (1)
  1. LIDOCAINE. [Suspect]
     Active Substance: LIDOCAINE

REACTIONS (3)
  - Drug ineffective [None]
  - Application site urticaria [None]
  - Product quality issue [None]

NARRATIVE: CASE EVENT DATE: 20161220
